FAERS Safety Report 9759804 (Version 1)
Quarter: 2013Q4

REPORT INFORMATION
  Report Type: Spontaneous
  Country: CH (occurrence: None)
  Receive Date: 20131212
  Receipt Date: 20131212
  Transmission Date: 20140711
  Serious: Yes (Death)
  Sender: FDA-Public Use
  Company Number: 20130689

PATIENT
  Age: 65 Year
  Sex: Female
  Weight: 62 kg

DRUGS (4)
  1. VENOFER [Suspect]
     Indication: PRODUCT USED FOR UNKNOWN INDICATION
     Route: 042
     Dates: start: 20131031, end: 20131031
  2. AVASTIN [Suspect]
     Indication: COLORECTAL CANCER STAGE IV
     Dosage: 1 I N 21 D
     Dates: start: 20131031, end: 20131031
  3. OXALIPLATIN [Suspect]
     Indication: COLORECTAL CANCER STAGE IV
     Route: 042
     Dates: start: 20131031, end: 20131031
  4. HAEMATITES [Concomitant]

REACTIONS (3)
  - Pulmonary embolism [None]
  - Acute myocardial infarction [None]
  - Cardio-respiratory arrest [None]
